FAERS Safety Report 21601600 (Version 1)
Quarter: 2022Q4

REPORT INFORMATION
  Report Type: Report from Study
  Country: US (occurrence: US)
  Receive Date: 20221116
  Receipt Date: 20221116
  Transmission Date: 20230113
  Serious: Yes (Other)
  Sender: FDA-Public Use
  Company Number: US-002147023-NVSC2022US253872

PATIENT
  Age: 57 Year
  Sex: Female
  Weight: 88.9 kg

DRUGS (1)
  1. AFINITOR [Suspect]
     Active Substance: EVEROLIMUS
     Indication: Neoplasm
     Dosage: 10 MG, QD
     Route: 048
     Dates: start: 20210901, end: 20221001

REACTIONS (4)
  - Peripheral swelling [Recovering/Resolving]
  - Blood calcium decreased [Recovering/Resolving]
  - Blood test abnormal [Recovering/Resolving]
  - Cardiac dysfunction [Recovering/Resolving]

NARRATIVE: CASE EVENT DATE: 20220301
